FAERS Safety Report 24760298 (Version 1)
Quarter: 2024Q4

REPORT INFORMATION
  Report Type: Spontaneous
  Country: SG (occurrence: SG)
  Receive Date: 20241220
  Receipt Date: 20241220
  Transmission Date: 20250114
  Serious: Yes (Other)
  Sender: MYLAN
  Company Number: SG-MYLANLABS-2024M1113820

PATIENT
  Age: 87 Year
  Sex: Male

DRUGS (1)
  1. GABAPENTIN [Suspect]
     Active Substance: GABAPENTIN
     Indication: Product used for unknown indication
     Dosage: 100 MILLIGRAM, PM
     Route: 048
     Dates: start: 20241123, end: 20241126

REACTIONS (5)
  - Suicidal ideation [Recovered/Resolved]
  - Delusion [Recovered/Resolved]
  - Periorbital oedema [Recovered/Resolved]
  - Dysarthria [Recovered/Resolved]
  - Dizziness [Recovered/Resolved]

NARRATIVE: CASE EVENT DATE: 20241124
